FAERS Safety Report 8501223-2 (Version None)
Quarter: 2012Q3

REPORT INFORMATION
  Report Type: 
  Country: None (occurrence: None)
  Receive Date: 20120710
  Receipt Date: 20120625
  Transmission Date: 20120928
  Serious: Yes (Hospitalization)
  Sender: FDA-Public Use
  Company Number: US-ARROW-2012-11385

PATIENT
  Age: 32 Year
  Sex: Female

DRUGS (9)
  1. TERBUTALINE [Suspect]
     Indication: ASTHMA
     Dosage: 0.25 MG, X 2
     Route: 058
  2. ALBUTEROL [Suspect]
     Dosage: UNK  PRN
     Route: 055
  3. FLUTICASONE FUROATE [Suspect]
     Indication: ASTHMA
     Dosage: 500 MCG,  W/ SALMETEROL 50 MCG INHALER, UNKNOWN
     Route: 055
  4. ALBUTEROL [Suspect]
     Dosage: 2.5 MG, TID
     Route: 055
  5. IPRATROPIUM BROMIDE MONOHYDRATE-SALBUTAMOL SULPHATE (UNKNOWN) [Suspect]
     Dosage: UNK
  6. ALBUTEROL [Suspect]
     Indication: ASTHMA
     Dosage: 2.5 MG, TID
     Route: 055
  7. ALBUTEROL [Suspect]
     Dosage: 90 MCG/PUFF,  X 2 OR MORE PUFFS, X 5 TIMES THAT DAY
  8. ALBUTEROL [Suspect]
     Dosage: 2.5 MG, SINGLE
  9. IPRATROPIUM BROMIDE MONOHYDRATE-SALBUTAMOL SULPHATE (UNKNOWN) [Suspect]
     Indication: ASTHMA
     Dosage: 2.5 MG, X 6
     Route: 055

REACTIONS (1)
  - LACTIC ACIDOSIS [None]
